FAERS Safety Report 7135022 (Version 6)
Quarter: 2014Q2

REPORT INFORMATION
  Report Type: Spontaneous
  Country: US (occurrence: US)
  Receive Date: 20090930
  Receipt Date: 20140407
  Transmission Date: 20141212
  Serious: Yes (Other)
  Sender: FDA-Public Use
  Company Number: US-ALEXION-A200900775

PATIENT
  Age: 48 Year
  Sex: Female

DRUGS (8)
  1. SOLIRIS [Suspect]
     Indication: PAROXYSMAL NOCTURNAL HAEMOGLOBINURIA
     Dosage: 600 MG, X4 WEEKS
     Route: 042
     Dates: start: 20070516, end: 200706
  2. SOLIRIS [Suspect]
     Dosage: 900 MG, EVERY TWO WEEKS
     Route: 042
     Dates: start: 20070613
  3. COUMADIN                           /00014802/ [Concomitant]
     Dosage: 7.5 MG, UNK
     Route: 048
  4. PREDNISONE [Concomitant]
     Dosage: 20 MG, QD
     Route: 048
  5. CLONAPIN [Concomitant]
     Dosage: QHS PRN
     Route: 048
  6. PROZAC                             /00724401/ [Concomitant]
     Dosage: 20 MG, QD
     Route: 048
  7. FOLIC ACID [Concomitant]
     Dosage: 800 MCG, QD
     Route: 048
  8. KCL [Concomitant]
     Dosage: PRN
     Route: 048

REACTIONS (4)
  - Meniscus injury [Recovered/Resolved]
  - Laparoscopic surgery [Unknown]
  - Physiotherapy [Unknown]
  - Arthralgia [Not Recovered/Not Resolved]
